FAERS Safety Report 19188435 (Version 2)
Quarter: 2021Q2

REPORT INFORMATION
  Report Type: Spontaneous
  Country: TR (occurrence: TR)
  Receive Date: 20210428
  Receipt Date: 20210522
  Transmission Date: 20210717
  Serious: Yes (Other)
  Sender: FDA-Public Use
  Company Number: NVSC2021TR087216

PATIENT
  Age: 58 Year
  Sex: Female

DRUGS (1)
  1. FEMARA [Suspect]
     Active Substance: LETROZOLE
     Indication: BREAST CANCER
     Dosage: QHS (ONCE A DAY (IN THE EVENING)
     Route: 065

REACTIONS (3)
  - Musculoskeletal stiffness [Unknown]
  - Trigger finger [Not Recovered/Not Resolved]
  - Pain [Unknown]
